FAERS Safety Report 4442183-3 (Version None)
Quarter: 2004Q3

REPORT INFORMATION
  Report Type: 
  Country: None (occurrence: None)
  Receive Date: 20040903
  Receipt Date: 20040726
  Transmission Date: 20050211
  Serious: Yes (Other)
  Sender: FDA-Public Use
  Company Number: 2004UW15660

PATIENT
  Age: 77 Year
  Sex: Female
  Weight: 90.7194 kg

DRUGS (9)
  1. CRESTOR [Suspect]
     Indication: BLOOD CHOLESTEROL INCREASED
     Dosage: 10 MG DAILY PO
     Route: 048
     Dates: start: 20040130
  2. ASPIRIN [Concomitant]
  3. DOCUSATE [Concomitant]
  4. FUROSEMIDE [Concomitant]
  5. NEURONTIN [Concomitant]
  6. LOPID [Concomitant]
  7. VIOXX [Concomitant]
  8. MULTIVITAMIN [Concomitant]
  9. ALLEGRA-D [Concomitant]

REACTIONS (5)
  - ARTHRALGIA [None]
  - FATIGUE [None]
  - OEDEMA PERIPHERAL [None]
  - RASH PAPULAR [None]
  - WEIGHT INCREASED [None]
